FAERS Safety Report 8784109 (Version 1)
Quarter: 2012Q4

REPORT INFORMATION
  Report Type: 
  Country: US (occurrence: US)
  Receive Date: 20120913
  Receipt Date: 20120913
  Transmission Date: 20130627
  Serious: Yes (Hospitalization, Disabling, Other)
  Sender: FDA-Public Use
  Company Number: US-009507513-1106USA01029

PATIENT

DRUGS (7)
  1. FOSAMAX [Suspect]
     Indication: OSTEOPOROSIS
     Dosage: 70 mg, QW
     Route: 048
     Dates: start: 20020424, end: 200611
  2. FOSAMAX PLUS D [Suspect]
     Indication: OSTEOPOROSIS
     Dosage: 70 mg, qd
     Route: 048
     Dates: start: 20060124
  3. FOSAMAX PLUS D [Suspect]
     Dosage: 70 mg, UNK
     Route: 048
     Dates: start: 200612, end: 200705
  4. CALCIUM (UNSPECIFIED) [Concomitant]
     Dosage: 1500 mg, qd
     Dates: start: 1980
  5. MAGNESIUM CITRATE [Concomitant]
     Dosage: 800 mg, qd
     Dates: start: 1980
  6. VITAMIN D (UNSPECIFIED) [Concomitant]
     Dosage: 1000 IU, qd
     Dates: start: 1980
  7. MK-9278 [Concomitant]
     Dosage: 1 DF, qd
     Dates: start: 1980

REACTIONS (30)
  - Gallbladder disorder [Unknown]
  - Thrombosis in device [Unknown]
  - Cardiac murmur [Unknown]
  - Depression [Unknown]
  - Cardiovascular disorder [Unknown]
  - Coronary artery disease [Unknown]
  - Hyponatraemia [Recovered/Resolved]
  - Atrial fibrillation [Unknown]
  - Osteoporosis [Not Recovered/Not Resolved]
  - Stress fracture [Not Recovered/Not Resolved]
  - Low turnover osteopathy [Not Recovered/Not Resolved]
  - Femur fracture [Not Recovered/Not Resolved]
  - Anxiety [Unknown]
  - Laceration [Unknown]
  - Steroid therapy [Unknown]
  - Macular degeneration [Unknown]
  - Hyperthyroidism [Unknown]
  - Ear pain [Unknown]
  - Hyperlipidaemia [Unknown]
  - Ulcer [Unknown]
  - Mitral valve incompetence [Unknown]
  - Tricuspid valve incompetence [Unknown]
  - Aortic valve incompetence [Not Recovered/Not Resolved]
  - Overdose [Unknown]
  - Bursitis [Unknown]
  - Peripheral arterial occlusive disease [Unknown]
  - Pulmonary valve incompetence [Unknown]
  - Arthritis [Unknown]
  - Angina unstable [Unknown]
  - Gastrooesophageal reflux disease [Unknown]
